FAERS Safety Report 17359280 (Version 2)
Quarter: 2020Q2

REPORT INFORMATION
  Report Type: Spontaneous
  Country: US (occurrence: US)
  Receive Date: 20200203
  Receipt Date: 20200413
  Transmission Date: 20200713
  Serious: No
  Sender: FDA-Public Use
  Company Number: US-BIOGEN-2020BI00833759

PATIENT
  Sex: Female

DRUGS (2)
  1. TYSABRI [Suspect]
     Active Substance: NATALIZUMAB
     Route: 042
  2. TYSABRI [Suspect]
     Active Substance: NATALIZUMAB
     Indication: MULTIPLE SCLEROSIS
     Route: 042
     Dates: start: 20070830

REACTIONS (4)
  - Product dose omission [Recovered/Resolved]
  - Prescribed underdose [Not Recovered/Not Resolved]
  - Trigeminal neuralgia [Unknown]
  - Hemianaesthesia [Unknown]

NARRATIVE: CASE EVENT DATE: 2019
